FAERS Safety Report 11910995 (Version 1)
Quarter: 2016Q1

REPORT INFORMATION
  Report Type: Spontaneous
  Country: US (occurrence: None)
  Receive Date: 20160111
  Receipt Date: 20160111
  Transmission Date: 20160526
  Serious: Yes (Hospitalization)
  Sender: FDA-Public Use
  Company Number: None

PATIENT
  Age: 71 Year
  Sex: Male
  Weight: 79.38 kg

DRUGS (9)
  1. EFFIENT [Suspect]
     Active Substance: PRASUGREL HYDROCHLORIDE
     Indication: STENT PLACEMENT
     Route: 048
     Dates: start: 20150327, end: 20151212
  2. TRAMAD/ACETAMIN [Concomitant]
  3. METROPROLOL [Concomitant]
     Active Substance: METOPROLOL
  4. LIPITOR [Concomitant]
     Active Substance: ATORVASTATIN CALCIUM
  5. PROSCAR [Concomitant]
     Active Substance: FINASTERIDE
  6. PLAVIX [Concomitant]
     Active Substance: CLOPIDOGREL BISULFATE
  7. ASPRIN [Concomitant]
     Active Substance: ASPIRIN
  8. AMIODIPINE BESYLATE 2.5 MG, GREENSTONE BRAND [Concomitant]
     Active Substance: AMLODIPINE BESYLATE
  9. GABAPENTIN. [Concomitant]
     Active Substance: GABAPENTIN

REACTIONS (1)
  - Urinary bladder haemorrhage [None]

NARRATIVE: CASE EVENT DATE: 20151212
